FAERS Safety Report 4525416-4 (Version None)
Quarter: 2004Q4

REPORT INFORMATION
  Report Type: 
  Country: None (occurrence: None)
  Receive Date: 20041213
  Receipt Date: 20041202
  Transmission Date: 20050328
  Serious: Yes (Other)
  Sender: FDA-Public Use
  Company Number: GB-GLAXOSMITHKLINE-B0359044A

PATIENT
  Age: 4 Year
  Sex: Male

DRUGS (3)
  1. BECOTIDE [Suspect]
     Indication: ASTHMA
     Dosage: 2PUFF TWICE PER DAY
     Dates: start: 20000911
  2. PHENERGAN [Concomitant]
     Dosage: 5MG THREE TIMES PER DAY
     Route: 048
     Dates: start: 20040501, end: 20040501
  3. VENTOLIN [Concomitant]
     Dosage: 2PUFF AS REQUIRED
     Dates: start: 20040501

REACTIONS (1)
  - HOARSENESS [None]
